FAERS Safety Report 8420465-8 (Version None)
Quarter: 2012Q2

REPORT INFORMATION
  Report Type: 
  Country: None (occurrence: None)
  Receive Date: 20120608
  Receipt Date: 20120526
  Transmission Date: 20120825
  Serious: Yes (Other)
  Sender: FDA-Public Use
  Company Number: US-PAR PHARMACEUTICAL, INC-2012SCPR004405

PATIENT

DRUGS (7)
  1. DICLOFENAC SODIUM [Concomitant]
     Indication: PRODUCT USED FOR UNKNOWN INDICATION
     Dosage: UNK, UNKNOWN
     Route: 065
  2. GABAPENTIN [Concomitant]
     Indication: PRODUCT USED FOR UNKNOWN INDICATION
     Dosage: UNK, UNKNOWN
     Route: 065
  3. DIAZEPAM [Suspect]
     Indication: PRODUCT USED FOR UNKNOWN INDICATION
     Dosage: UNK, PRN
     Route: 065
  4. CLONAZEPAM [Suspect]
     Dosage: 3.5 TABETS 3 TIMES A DAY (STRENGTH: 0.25 MG)
     Route: 048
     Dates: start: 20120521, end: 20120523
  5. MORPHINE [Concomitant]
     Indication: PRODUCT USED FOR UNKNOWN INDICATION
     Dosage: UNK, PRN
  6. CLONAZEPAM [Suspect]
     Indication: ABNORMAL BEHAVIOUR
     Dosage: UNK, UNKNOWN (STRENGTH: 0.25 MG)
     Route: 048
     Dates: start: 20110301, end: 20120301
  7. CLONAZEPAM [Suspect]
     Dosage: 3.5 TABETS 3 TIMES A DAY (STRENGTH: 0.125 MG)
     Route: 048
     Dates: start: 20120301, end: 20120520

REACTIONS (6)
  - CIRCUMSTANCE OR INFORMATION CAPABLE OF LEADING TO MEDICATION ERROR [None]
  - HYPOPHAGIA [None]
  - DYSPHAGIA [None]
  - ACCIDENTAL OVERDOSE [None]
  - DRUG DISPENSING ERROR [None]
  - INSOMNIA [None]
